FAERS Safety Report 4502926-7 (Version None)
Quarter: 2004Q4

REPORT INFORMATION
  Report Type: 
  Country: None (occurrence: None)
  Receive Date: 20041116
  Receipt Date: 20041116
  Transmission Date: 20050328
  Serious: Yes (Hospitalization)
  Sender: FDA-Public Use
  Company Number: None

PATIENT
  Age: 49 Year
  Sex: Male
  Weight: 86.1834 kg

DRUGS (2)
  1. BEXTRA [Suspect]
     Indication: NEPHROLITHIASIS
     Dosage: 1  4X DAY ORAL
     Route: 048
     Dates: start: 20040404, end: 20040405
  2. BEXTRA [Suspect]
     Indication: PAIN
     Dosage: 1  4X DAY ORAL
     Route: 048
     Dates: start: 20040404, end: 20040405

REACTIONS (2)
  - FEELING ABNORMAL [None]
  - SYNCOPE [None]
